FAERS Safety Report 8077458-2 (Version None)
Quarter: 2012Q1

REPORT INFORMATION
  Report Type: 
  Country: None (occurrence: None)
  Receive Date: 20120127
  Receipt Date: 20120116
  Transmission Date: 20120608
  Serious: Yes (Other)
  Sender: FDA-Public Use
  Company Number: NO-BRISTOL-MYERS SQUIBB COMPANY-16351447

PATIENT
  Age: 54 Year
  Sex: Female

DRUGS (1)
  1. MITOTANE [Suspect]
     Indication: ADRENOCORTICAL CARCINOMA
     Dosage: INTIAL DOSE:2-4G AND THEN 665G

REACTIONS (1)
  - PORPHYRIA ACUTE [None]
